FAERS Safety Report 6463831-2 (Version None)
Quarter: 2009Q4

REPORT INFORMATION
  Report Type: 
  Country: None (occurrence: None)
  Receive Date: 20091201
  Receipt Date: 20091120
  Transmission Date: 20100525
  Serious: Yes (Hospitalization)
  Sender: FDA-Public Use
  Company Number: DE-JNJFOC-20091000887

PATIENT
  Age: 79 Year
  Sex: Female
  Weight: 43 kg

DRUGS (11)
  1. HYDROMORPHONE HCL [Suspect]
     Route: 048
     Dates: start: 20090501, end: 20090824
  2. HYDROMORPHONE HCL [Suspect]
     Indication: PAIN
     Route: 048
     Dates: start: 20090501, end: 20090824
  3. IBUPROFEN [Suspect]
     Indication: PAIN
     Route: 048
  4. LOSARTAN POTASSIUM AND HYDROCHLOROTHIAZIDE [Suspect]
     Indication: HYPERTENSION
     Route: 048
  5. PALLADONE [Suspect]
     Indication: PAIN
     Route: 048
     Dates: start: 20090501, end: 20090826
  6. ISOPTIN RR PLUS [Suspect]
     Indication: ATRIAL FIBRILLATION
     Route: 048
  7. PENTAERYTHRITOL TETRANITRATE [Concomitant]
     Indication: CORONARY ARTERY DISEASE
     Route: 048
  8. CELEBREX [Concomitant]
     Indication: PAIN
     Route: 048
     Dates: start: 20080101, end: 20090826
  9. FALITHROM [Concomitant]
     Indication: ATRIAL FIBRILLATION
     Route: 048
  10. PANTOPRAZOLE [Concomitant]
     Indication: PROPHYLAXIS AGAINST GASTROINTESTINAL ULCER
     Route: 048
  11. DOMPERIDONE [Concomitant]
     Indication: NAUSEA
     Route: 048

REACTIONS (1)
  - FAECALOMA [None]
